FAERS Safety Report 7340791-3 (Version None)
Quarter: 2011Q1

REPORT INFORMATION
  Report Type: 
  Country: None (occurrence: None)
  Receive Date: 20110228
  Receipt Date: 20110223
  Transmission Date: 20110831
  Serious: Yes (Hospitalization, Disabling, Other)
  Sender: FDA-Public Use
  Company Number: 2010SP058337

PATIENT
  Age: 25 Year
  Sex: Female
  Weight: 68.0396 kg

DRUGS (3)
  1. NUVARING [Suspect]
     Indication: CONTRACEPTION
     Dates: start: 20050101, end: 20060101
  2. NUVARING [Suspect]
     Indication: CONTRACEPTION
     Dates: start: 20070101, end: 20100301
  3. CLARITIN [Concomitant]

REACTIONS (15)
  - FIBRIN D DIMER INCREASED [None]
  - IMPAIRED WORK ABILITY [None]
  - PULMONARY EMBOLISM [None]
  - MENTAL DISORDER [None]
  - JOINT INJURY [None]
  - MIGRAINE [None]
  - FALL [None]
  - THROMBOSIS [None]
  - DEPRESSION [None]
  - COGNITIVE DISORDER [None]
  - JOINT EFFUSION [None]
  - OVARIAN CYST [None]
  - INJURY [None]
  - EMOTIONAL DISORDER [None]
  - IMMOBILE [None]
